FAERS Safety Report 5737638-5 (Version None)
Quarter: 2008Q2

REPORT INFORMATION
  Report Type: 
  Country: None (occurrence: None)
  Receive Date: 20080512
  Receipt Date: 20080512
  Transmission Date: 20081010
  Serious: Yes (Hospitalization)
  Sender: FDA-Public Use
  Company Number: None

PATIENT
  Age: 55 Year
  Sex: Male
  Weight: 142.8831 kg

DRUGS (1)
  1. DIGOXIN [Suspect]
     Indication: ATRIAL FIBRILLATION
     Dosage: 0.25 MG ONCE A DAY PO
     Route: 048
     Dates: start: 20070425, end: 20080510

REACTIONS (2)
  - PANCREATITIS ACUTE [None]
  - PHARMACEUTICAL PRODUCT COMPLAINT [None]
